FAERS Safety Report 11659427 (Version 1)
Quarter: 2015Q4

REPORT INFORMATION
  Report Type: Spontaneous
  Country: CA (occurrence: CA)
  Receive Date: 20151026
  Receipt Date: 20151026
  Transmission Date: 20160304
  Serious: Yes (Other)
  Sender: FDA-Public Use
  Company Number: CA-TEVA-601979ACC

PATIENT
  Age: 40 Year
  Sex: Male
  Weight: 90.8 kg

DRUGS (8)
  1. AGGRENOX [Concomitant]
     Active Substance: ASPIRIN\DIPYRIDAMOLE
  2. HUMALOG [Concomitant]
     Active Substance: INSULIN LISPRO
  3. ARTHROTEC [Concomitant]
     Active Substance: DICLOFENAC SODIUM\MISOPROSTOL
  4. LIPITOR [Concomitant]
     Active Substance: ATORVASTATIN CALCIUM
  5. PREVACID [Concomitant]
     Active Substance: LANSOPRAZOLE
  6. BUPROPION. [Suspect]
     Active Substance: BUPROPION
     Indication: DEPRESSION
     Dosage: 300 MILLIGRAM DAILY;
     Route: 048
  7. ATIVAN [Concomitant]
     Active Substance: LORAZEPAM
  8. LANTUS [Concomitant]
     Active Substance: INSULIN GLARGINE

REACTIONS (2)
  - Abdominal discomfort [Recovered/Resolved]
  - Product substitution issue [Recovered/Resolved]
